FAERS Safety Report 7673515-0 (Version None)
Quarter: 2011Q3

REPORT INFORMATION
  Report Type: 
  Country: None (occurrence: None)
  Receive Date: 20110810
  Receipt Date: 20110706
  Transmission Date: 20111222
  Serious: Yes (Other)
  Sender: FDA-Public Use
  Company Number: BR-PFIZER INC-2011181294

PATIENT
  Age: 32 Year
  Sex: Female

DRUGS (6)
  1. TRAZODONE HCL [Suspect]
     Dosage: 150 MG/D
  2. MIDAZOLAM [Concomitant]
  3. TRAZODONE HCL [Suspect]
     Dosage: 112.5 MG/D
  4. TIMOLOL [Concomitant]
     Dosage: 0.5 %, 2 APPLICATIONS PER DAY
  5. FLUOXETINE [Concomitant]
     Dosage: 80 MG, 2X/DAY
  6. TRAZODONE HCL [Suspect]
     Dosage: 75 MG/D

REACTIONS (2)
  - INTRAOCULAR PRESSURE INCREASED [None]
  - ANGLE CLOSURE GLAUCOMA [None]
